FAERS Safety Report 4434707-7 (Version None)
Quarter: 2004Q3

REPORT INFORMATION
  Report Type: 
  Country: None (occurrence: None)
  Receive Date: 20040827
  Receipt Date: 20040506
  Transmission Date: 20050211
  Serious: No
  Sender: FDA-Public Use
  Company Number: US-BRISTOL-MYERS SQUIBB COMPANY-12580833

PATIENT
  Age: 41 Year
  Sex: Female

DRUGS (5)
  1. DEFINITY [Suspect]
     Indication: ULTRASOUND SCAN
     Route: 051
     Dates: start: 20040310, end: 20040310
  2. ASPIRIN [Concomitant]
  3. NITROGLYCERIN [Concomitant]
  4. FOSINOPRIL SODIUM [Concomitant]
  5. BUPROPION HCL [Concomitant]

REACTIONS (1)
  - BACK PAIN [None]
